FAERS Safety Report 24687738 (Version 1)
Quarter: 2024Q4

REPORT INFORMATION
  Report Type: Spontaneous
  Country: CN (occurrence: CN)
  Receive Date: 20241202
  Receipt Date: 20241202
  Transmission Date: 20250115
  Serious: Yes (Other)
  Sender: BAYER HEALTHCARE PHARMACEUTICALS INC.
  Company Number: CN-BAYER-2024A170416

PATIENT
  Age: 55 Year
  Sex: Female

DRUGS (4)
  1. ULTRAVIST [Suspect]
     Active Substance: IOPROMIDE
     Indication: Computerised tomogram abdomen
     Dosage: 76.89 G, ONCE
     Route: 042
     Dates: start: 20241121, end: 20241121
  2. ULTRAVIST [Suspect]
     Active Substance: IOPROMIDE
     Indication: Contrast-enhanced magnetic resonance venography
  3. ULTRAVIST [Suspect]
     Active Substance: IOPROMIDE
     Indication: Abdominal pain
  4. ULTRAVIST [Suspect]
     Active Substance: IOPROMIDE
     Indication: Small intestinal obstruction

REACTIONS (15)
  - Contrast media allergy [Recovering/Resolving]
  - Somnolence [Recovering/Resolving]
  - Swelling face [Recovering/Resolving]
  - Trismus [Recovering/Resolving]
  - Temperature intolerance [None]
  - Chills [None]
  - Flushing [Recovered/Resolved]
  - Pruritus [None]
  - Head discomfort [None]
  - Aphasia [Recovered/Resolved]
  - Heart rate increased [None]
  - Blood pressure diastolic decreased [None]
  - Oxygen saturation decreased [None]
  - Headache [None]
  - Eyelid oedema [Recovering/Resolving]

NARRATIVE: CASE EVENT DATE: 20241121
